FAERS Safety Report 6983324 (Version 2)
Quarter: 2014Q4

REPORT INFORMATION
  Report Type: Spontaneous
  Country: US (occurrence: US)
  Receive Date: 20090430
  Receipt Date: 20141226
  Transmission Date: 20150529
  Serious: No
  Sender: FDA-Public Use
  Company Number: US-ASTRAZENECA-2009UW05004

PATIENT
  Age: 22950 Day
  Sex: Female
  Weight: 65.3 kg

DRUGS (5)
  1. NEXIUM [Suspect]
     Active Substance: ESOMEPRAZOLE MAGNESIUM
     Indication: GASTROOESOPHAGEAL REFLUX DISEASE
     Route: 048
     Dates: start: 20090223
  2. VITAMINS [Concomitant]
     Active Substance: VITAMINS
     Indication: SUPPLEMENTATION THERAPY
  3. CRESTOR [Suspect]
     Active Substance: ROSUVASTATIN CALCIUM
     Indication: BLOOD CHOLESTEROL INCREASED
     Route: 048
  4. COQ10 [Concomitant]
     Active Substance: UBIDECARENONE
  5. CRESTOR [Suspect]
     Active Substance: ROSUVASTATIN CALCIUM
     Indication: BLOOD CHOLESTEROL INCREASED
     Route: 048
     Dates: start: 20140322

REACTIONS (10)
  - Off label use [Unknown]
  - Limb discomfort [Unknown]
  - Blood cholesterol increased [Unknown]
  - Flatulence [Not Recovered/Not Resolved]
  - Feeling abnormal [Unknown]
  - Musculoskeletal stiffness [Unknown]
  - Gastric disorder [Not Recovered/Not Resolved]
  - Intentional product misuse [Unknown]
  - Pain in extremity [Unknown]
  - Throat irritation [Unknown]

NARRATIVE: CASE EVENT DATE: 20090224
